FAERS Safety Report 15345457 (Version 1)
Quarter: 2018Q3

REPORT INFORMATION
  Report Type: Report from Study
  Country: RO (occurrence: RO)
  Receive Date: 20180903
  Receipt Date: 20180903
  Transmission Date: 20181010
  Serious: Yes (Hospitalization, Other)
  Sender: FDA-Public Use
  Company Number: RO-009507513-1806ROM005361

PATIENT
  Age: 65 Year
  Sex: Male

DRUGS (12)
  1. RIBAVIRIN. [Suspect]
     Active Substance: RIBAVIRIN
     Indication: HEPATIC CIRRHOSIS
     Dosage: 3 DF, QD
     Route: 048
     Dates: start: 20180212, end: 201803
  2. FUROSEMIDE. [Concomitant]
     Active Substance: FUROSEMIDE
  3. PROPRANOLOL [Concomitant]
     Active Substance: PROPRANOLOL HYDROCHLORIDE
     Indication: VARICES OESOPHAGEAL
     Dosage: 2 DF, QD
     Route: 048
  4. RIBAVIRIN. [Suspect]
     Active Substance: RIBAVIRIN
     Dosage: 2 DF, QD
     Route: 048
     Dates: start: 201803, end: 201804
  5. MODERIBA [Concomitant]
     Active Substance: RIBAVIRIN
     Dosage: 2 DF, QD
     Route: 048
     Dates: start: 201803
  6. VEROSPIRON [Concomitant]
     Active Substance: SPIRONOLACTONE
  7. LEDIPASVIR (+) SOFOSBUVIR [Suspect]
     Active Substance: LEDIPASVIR\SOFOSBUVIR
     Indication: HEPATIC CIRRHOSIS
     Dosage: 1 DF, QD
     Route: 048
     Dates: start: 20180212
  8. CONTROLOC (PANTOPRAZOLE) [Concomitant]
     Dosage: 1 DF, QD
     Route: 048
  9. SUN WAVE TIOLIN COMPLEX [Concomitant]
     Dosage: UNK
  10. NORMIX [Concomitant]
     Active Substance: RIFAXIMIN
     Dosage: 3 DF, QD
  11. LAGOSA [Concomitant]
     Active Substance: DIETARY SUPPLEMENT\HERBALS\MILK THISTLE
     Dosage: UNK
  12. RIBAVIRIN. [Suspect]
     Active Substance: RIBAVIRIN
     Dosage: 3 DF, QD
     Route: 048
     Dates: start: 201804, end: 20180506

REACTIONS (13)
  - Thrombocytopenia [Unknown]
  - Diabetic ketoacidosis [Recovered/Resolved]
  - Blood glucose fluctuation [Unknown]
  - Ascites [Not Recovered/Not Resolved]
  - Purging [Not Recovered/Not Resolved]
  - Asthenia [Unknown]
  - Off label use [Not Recovered/Not Resolved]
  - Oedema peripheral [Unknown]
  - Localised oedema [Not Recovered/Not Resolved]
  - Blood bilirubin increased [Not Recovered/Not Resolved]
  - Abdominal distension [Not Recovered/Not Resolved]
  - Leukopenia [Unknown]
  - Drug ineffective [Unknown]

NARRATIVE: CASE EVENT DATE: 2018
